FAERS Safety Report 10681966 (Version 3)
Quarter: 2015Q2

REPORT INFORMATION
  Report Type: Report from Study
  Country: JP (occurrence: JP)
  Receive Date: 20141230
  Receipt Date: 20150521
  Transmission Date: 20150821
  Serious: Yes (Other)
  Sender: FDA-Public Use
  Company Number: PHHY2014JP005644

PATIENT
  Age: 45 Year
  Sex: Male

DRUGS (24)
  1. CLOZARIL [Suspect]
     Active Substance: CLOZAPINE
     Indication: SCHIZOPHRENIA, PARANOID TYPE
     Dosage: 12.5 MG, QD
     Route: 048
     Dates: start: 20131120, end: 20131120
  2. CLOZARIL [Suspect]
     Active Substance: CLOZAPINE
     Dosage: 75 MG, QD
     Route: 048
     Dates: start: 20131127, end: 20131129
  3. ZYPREXA [Concomitant]
     Active Substance: OLANZAPINE
     Indication: SCHIZOPHRENIA, PARANOID TYPE
     Dosage: 15 MG, QD
     Route: 048
     Dates: start: 20131120, end: 20131122
  4. TASMOLIN [Concomitant]
     Active Substance: BIPERIDEN
     Indication: SCHIZOPHRENIA, PARANOID TYPE
     Dosage: 1 MG, QD
     Route: 048
     Dates: end: 20131203
  5. SULTIMIN [Concomitant]
     Indication: SCHIZOPHRENIA, PARANOID TYPE
     Dosage: 5 MG, QD
     Route: 048
     Dates: start: 20140110
  6. CLOZARIL [Suspect]
     Active Substance: CLOZAPINE
     Dosage: 25 MG, QD
     Route: 048
     Dates: start: 20131121, end: 20131123
  7. BENZALIN [Concomitant]
     Active Substance: NITRAZEPAM
     Indication: SCHIZOPHRENIA, PARANOID TYPE
     Dosage: 10 MG, QD
     Route: 048
  8. LIMAS [Concomitant]
     Active Substance: LITHIUM CARBONATE
     Dosage: 600 MG, QD
     Route: 048
     Dates: start: 20140212
  9. CLOZARIL [Suspect]
     Active Substance: CLOZAPINE
     Dosage: 150 MG, QD
     Route: 048
     Dates: start: 20131207, end: 20131210
  10. CLOZARIL [Suspect]
     Active Substance: CLOZAPINE
     Dosage: 175 MG, QD
     Route: 048
     Dates: start: 20131211, end: 20131213
  11. CLOZARIL [Suspect]
     Active Substance: CLOZAPINE
     Dosage: 200 MG, QD
     Route: 048
     Dates: start: 20131214, end: 20131217
  12. CLOZARIL [Suspect]
     Active Substance: CLOZAPINE
     Dosage: 225 MG, QD
     Route: 048
     Dates: start: 20131218, end: 20131221
  13. WYPAX [Concomitant]
     Active Substance: LORAZEPAM
     Indication: SCHIZOPHRENIA, PARANOID TYPE
     Dosage: 1 MG, QD
     Route: 048
     Dates: end: 20131203
  14. WYPAX [Concomitant]
     Active Substance: LORAZEPAM
     Dosage: 0.5 MG, UNK
     Route: 048
     Dates: start: 20131214, end: 20131217
  15. BROTIZOLAN [Concomitant]
     Indication: SCHIZOPHRENIA, PARANOID TYPE
     Dosage: 0.25 MG, QD
     Route: 048
  16. CLOZARIL [Suspect]
     Active Substance: CLOZAPINE
     Dosage: 100 MG, QD
     Route: 048
     Dates: start: 20131130, end: 20131203
  17. CLOZARIL [Suspect]
     Active Substance: CLOZAPINE
     Dosage: 300 MG, QD
     Route: 048
     Dates: start: 20131227, end: 20131231
  18. ZYPREXA [Concomitant]
     Active Substance: OLANZAPINE
     Dosage: 10 MG, QD
     Route: 048
     Dates: start: 20131123, end: 20131126
  19. CLOZARIL [Suspect]
     Active Substance: CLOZAPINE
     Dosage: 250 MG, QD
     Route: 048
     Dates: start: 20131222, end: 20131226
  20. LIMAS [Concomitant]
     Active Substance: LITHIUM CARBONATE
     Indication: PROPHYLAXIS
     Dosage: 400 MG, QD
     Route: 048
     Dates: start: 20140116, end: 20140211
  21. CLOZARIL [Suspect]
     Active Substance: CLOZAPINE
     Dosage: 50 MG, QD
     Route: 048
     Dates: start: 20131124, end: 20131126
  22. CLOZARIL [Suspect]
     Active Substance: CLOZAPINE
     Dosage: 125 MG, QD
     Route: 048
     Dates: start: 20131204, end: 20131206
  23. CLOZARIL [Suspect]
     Active Substance: CLOZAPINE
     Dosage: 350 MG, QD
     Route: 048
     Dates: start: 20140101, end: 20140113
  24. MAGMITT [Concomitant]
     Active Substance: MAGNESIUM OXIDE
     Indication: SCHIZOPHRENIA, PARANOID TYPE
     Dosage: 2000 MG, QD
     Route: 048
     Dates: end: 20140220

REACTIONS (3)
  - Leukopenia [Recovered/Resolved]
  - Granulocytopenia [Recovered/Resolved]
  - Salivary hypersecretion [Recovered/Resolved]

NARRATIVE: CASE EVENT DATE: 20131220
